FAERS Safety Report 25114977 (Version 1)
Quarter: 2025Q1

REPORT INFORMATION
  Report Type: Spontaneous
  Country: US (occurrence: US)
  Receive Date: 20250324
  Receipt Date: 20250324
  Transmission Date: 20250409
  Serious: No
  Sender: USAntibiotics
  Company Number: US-USAntibiotics-000392

PATIENT
  Age: 70 Year
  Sex: Female

DRUGS (3)
  1. AUGMENTIN [Suspect]
     Active Substance: AMOXICILLIN\CLAVULANATE POTASSIUM
     Indication: Ear pain
  2. DUPIXENT [Concomitant]
     Active Substance: DUPILUMAB
     Indication: Dermatitis atopic
     Dosage: 600 MG ONCE
     Route: 058
     Dates: start: 20230519
  3. DUPIXENT [Concomitant]
     Active Substance: DUPILUMAB
     Indication: Dermatitis atopic
     Dosage: 300 MG ONCE QOW (EVERY OTHER WEEK)
     Route: 058
     Dates: start: 20230519

REACTIONS (1)
  - Vomiting [Recovering/Resolving]
